FAERS Safety Report 8113146-1 (Version None)
Quarter: 2012Q1

REPORT INFORMATION
  Report Type: 
  Country: None (occurrence: None)
  Receive Date: 20120131
  Receipt Date: 20120116
  Transmission Date: 20120608
  Serious: Yes (Hospitalization)
  Sender: FDA-Public Use
  Company Number: 1000027365

PATIENT
  Age: 56 Year
  Sex: Female

DRUGS (5)
  1. LORAZEPAM [Concomitant]
  2. SEROQUEL [Suspect]
     Dosage: 50 MG (50 MG, 1 IN 1 D), ORAL
     Route: 048
     Dates: start: 20110101, end: 20110401
  3. REMERON [Suspect]
     Dosage: 45 MG (45 MG, 1 IN 1 D), ORAL
     Route: 048
     Dates: start: 20110101, end: 20110401
  4. ESCITALOPRAM OXALATE [Suspect]
     Dosage: 10 MG (10 MG, 1 IN 1 D), ORAL
     Route: 048
     Dates: start: 20110831, end: 20110917
  5. ZOLPIDEM TARTRATE [Concomitant]

REACTIONS (7)
  - AGITATION [None]
  - HYPONATRAEMIA [None]
  - ANXIETY [None]
  - C-REACTIVE PROTEIN INCREASED [None]
  - CONVULSION [None]
  - BLOOD ALBUMIN DECREASED [None]
  - ASTHENIA [None]
